FAERS Safety Report 23447382 (Version 1)
Quarter: 2024Q1

REPORT INFORMATION
  Report Type: Spontaneous
  Country: ES (occurrence: ES)
  Receive Date: 20240126
  Receipt Date: 20240126
  Transmission Date: 20240410
  Serious: Yes (Other)
  Sender: FDA-Public Use
  Company Number: ES-AMGEN-ESPSP2024011755

PATIENT
  Age: 65 Year
  Sex: Female

DRUGS (3)
  1. BEVACIZUMAB [Suspect]
     Active Substance: BEVACIZUMAB
     Indication: Maculopathy
     Dosage: 2 BEVACIZUMAB
  2. RANIBIZUMAB [Suspect]
     Active Substance: RANIBIZUMAB
     Indication: Maculopathy
     Dosage: 10 RAMBIZMAB INJECTIONS
  3. AFLIBERCEPT [Suspect]
     Active Substance: AFLIBERCEPT
     Indication: Maculopathy
     Dosage: 2 AFLIBERCEPT INJECTIONS

REACTIONS (3)
  - Macular degeneration [Unknown]
  - Drug ineffective for unapproved indication [Unknown]
  - Off label use [Unknown]
